FAERS Safety Report 5808533-8 (Version None)
Quarter: 2008Q3

REPORT INFORMATION
  Report Type: 
  Country: None (occurrence: None)
  Receive Date: 20080709
  Receipt Date: 20080709
  Transmission Date: 20090109
  Serious: Yes (Hospitalization)
  Sender: FDA-Public Use
  Company Number: None

PATIENT
  Age: 54 Year
  Sex: Male
  Weight: 87 kg

DRUGS (2)
  1. IBUPROFEN TABLETS [Suspect]
     Indication: PAIN
     Dosage: 200 MG QID PO
     Route: 048
     Dates: start: 20080529, end: 20080616
  2. GENTAMICIN [Suspect]
     Dosage: 140 MG TID IV
     Route: 042
     Dates: start: 20080502, end: 20080516

REACTIONS (1)
  - RENAL FAILURE ACUTE [None]
